FAERS Safety Report 23425734 (Version 1)
Quarter: 2024Q1

REPORT INFORMATION
  Report Type: Other
  Country: US (occurrence: US)
  Receive Date: 20240122
  Receipt Date: 20240122
  Transmission Date: 20240410
  Serious: Yes (Hospitalization)
  Sender: FDA-Public Use
  Company Number: US-BoehringerIngelheim-2024-BI-002788

PATIENT
  Age: 5 Decade
  Sex: Male

DRUGS (3)
  1. ALTEPLASE [Suspect]
     Active Substance: ALTEPLASE
     Indication: Ischaemic stroke
     Route: 065
  2. HYDROMORPHONE [Concomitant]
     Active Substance: HYDROMORPHONE
     Indication: Product used for unknown indication
  3. NALOXONE [Concomitant]
     Active Substance: NALOXONE
     Indication: Product used for unknown indication

REACTIONS (2)
  - Aortic dissection [Recovered/Resolved]
  - Pericardial effusion [Unknown]
